FAERS Safety Report 23561008 (Version 1)
Quarter: 2024Q1

REPORT INFORMATION
  Report Type: Spontaneous
  Country: US (occurrence: US)
  Receive Date: 20240224
  Receipt Date: 20240224
  Transmission Date: 20240409
  Serious: Yes (Other)
  Sender: FDA-Public Use
  Company Number: US-AMGEN-USASP2024034702

PATIENT
  Age: 56 Year
  Sex: Male

DRUGS (4)
  1. BEVACIZUMAB [Suspect]
     Active Substance: BEVACIZUMAB
     Indication: Choroidal neovascularisation
     Dosage: UNK
  2. RANIBIZUMAB [Concomitant]
     Active Substance: RANIBIZUMAB
     Indication: Choroidal neovascularisation
     Dosage: UNK
  3. AFLIBERCEPT [Concomitant]
     Active Substance: AFLIBERCEPT
     Indication: Choroidal neovascularisation
     Dosage: UNK
  4. TRIAMCINOLONE ACETONIDE [Concomitant]
     Active Substance: TRIAMCINOLONE ACETONIDE
     Indication: Choroidal neovascularisation
     Dosage: UNK

REACTIONS (6)
  - Macular oedema [Unknown]
  - Subretinal fluid [Unknown]
  - Haemangioblastoma [Unknown]
  - Drug ineffective for unapproved indication [Unknown]
  - Visual impairment [Unknown]
  - Off label use [Unknown]
